FAERS Safety Report 4726477-X (Version None)
Quarter: 2005Q3

REPORT INFORMATION
  Report Type: 
  Country: None (occurrence: None)
  Receive Date: 20050726
  Receipt Date: 20050721
  Transmission Date: 20060218
  Serious: Yes (Other)
  Sender: FDA-Public Use
  Company Number: 200510318BCA

PATIENT

DRUGS (2)
  1. AVELOX [Suspect]
  2. VINCRISTINE [Suspect]

REACTIONS (1)
  - NEUROTOXICITY [None]
